FAERS Safety Report 13641710 (Version 11)
Quarter: 2018Q2

REPORT INFORMATION
  Report Type: Spontaneous
  Country: US (occurrence: US)
  Receive Date: 20170612
  Receipt Date: 20180529
  Transmission Date: 20180711
  Serious: Yes (Congenital Anomaly, Other)
  Sender: FDA-Public Use
  Company Number: PHEH2017US017724

PATIENT
  Sex: Male

DRUGS (1)
  1. ZOFRAN [Suspect]
     Active Substance: ONDANSETRON HYDROCHLORIDE
     Indication: FOETAL EXPOSURE DURING PREGNANCY
     Dosage: MOTHER^S DOSE: 8 MG, BID
     Route: 064

REACTIONS (40)
  - Ventricular septal defect [Unknown]
  - Sickle cell trait [Unknown]
  - Right ventricular hypertrophy [Unknown]
  - Cardiac murmur [Unknown]
  - Bicuspid pulmonary valve [Unknown]
  - Pulmonary valve stenosis [Unknown]
  - Pulmonary valve disease [Unknown]
  - Laevocardia [Unknown]
  - Subacute endocarditis [Unknown]
  - Tricuspid valve incompetence [Unknown]
  - Benign neoplasm of thymus [Unknown]
  - Anhedonia [Unknown]
  - Hypovolaemia [Recovered/Resolved]
  - Upper respiratory tract infection [Unknown]
  - Pyrexia [Unknown]
  - Pulmonary oedema [Unknown]
  - Cardiomegaly [Unknown]
  - Platelet disorder [Unknown]
  - Acute respiratory failure [Unknown]
  - Cardiogenic shock [Unknown]
  - Rhinorrhoea [Unknown]
  - Cough [Unknown]
  - Ear pain [Unknown]
  - Pallor [Unknown]
  - Irritability [Unknown]
  - Transposition of the great vessels [Unknown]
  - Left-to-right cardiac shunt [Unknown]
  - Cytogenetic abnormality [Unknown]
  - Congenital anomaly [Unknown]
  - Cyanosis neonatal [Unknown]
  - Nasal congestion [Unknown]
  - Patent ductus arteriosus [Unknown]
  - Pulmonary artery stenosis congenital [Unknown]
  - Atrial enlargement [Unknown]
  - Foetal exposure during pregnancy [Unknown]
  - Injury [Unknown]
  - Atrial septal defect [Unknown]
  - Heart disease congenital [Unknown]
  - Pyelocaliectasis [Unknown]
  - Developmental delay [Unknown]
